FAERS Safety Report 5751858-5 (Version None)
Quarter: 2008Q2

REPORT INFORMATION
  Report Type: 
  Country: None (occurrence: None)
  Receive Date: 20080529
  Receipt Date: 20080307
  Transmission Date: 20081010
  Serious: Yes (Death, Other)
  Sender: FDA-Public Use
  Company Number: IS-BAYER-200818327GPV

PATIENT

DRUGS (13)
  1. ZEVALIN [Suspect]
     Indication: NON-HODGKIN'S LYMPHOMA
     Route: 065
  2. YTRACIS [Suspect]
     Indication: NON-HODGKIN'S LYMPHOMA
     Route: 065
  3. RITUXIMAB [Suspect]
     Indication: NON-HODGKIN'S LYMPHOMA
     Route: 065
  4. FLUDARABINE PHOSPHATE [Suspect]
     Indication: NON-HODGKIN'S LYMPHOMA
     Route: 065
  5. MELPHALAN [Suspect]
     Indication: NON-HODGKIN'S LYMPHOMA
     Route: 065
  6. BUSULFAN [Suspect]
     Indication: NON-HODGKIN'S LYMPHOMA
     Route: 065
  7. THYMOGLOBULIN [Concomitant]
     Route: 065
  8. PHENYTOIN [Concomitant]
     Route: 065
  9. CYCLOSPORINE [Concomitant]
     Indication: PROPHYLAXIS AGAINST GRAFT VERSUS HOST DISEASE
     Route: 065
  10. METHOTREXATE [Concomitant]
     Indication: PROPHYLAXIS AGAINST GRAFT VERSUS HOST DISEASE
     Route: 065
  11. METHOTREXATE [Concomitant]
     Route: 065
  12. NEUPOGEN [Concomitant]
     Route: 065
  13. ANTIBIOTICS [Concomitant]
     Indication: INFECTION PROPHYLAXIS
     Route: 065

REACTIONS (9)
  - ACUTE GRAFT VERSUS HOST DISEASE [None]
  - ACUTE GRAFT VERSUS HOST DISEASE IN INTESTINE [None]
  - ACUTE GRAFT VERSUS HOST DISEASE IN LIVER [None]
  - ACUTE GRAFT VERSUS HOST DISEASE IN SKIN [None]
  - CHRONIC GRAFT VERSUS HOST DISEASE [None]
  - METABOLIC ENCEPHALOPATHY [None]
  - MUCOSAL INFLAMMATION [None]
  - MULTI-ORGAN FAILURE [None]
  - RENAL FAILURE ACUTE [None]
